FAERS Safety Report 7950055-2 (Version None)
Quarter: 2011Q4

REPORT INFORMATION
  Report Type: 
  Country: None (occurrence: None)
  Receive Date: 20111130
  Receipt Date: 20111129
  Transmission Date: 20120403
  Serious: Yes (Hospitalization, Other)
  Sender: FDA-Public Use
  Company Number: US-B.I. PHARMACEUTICALS,INC./RIDGEFIELD-2011-BP-27008BP

PATIENT
  Age: 10 Year
  Sex: Male

DRUGS (2)
  1. KAPVAY [Suspect]
     Dosage: 0.2 MG
     Dates: start: 20110901
  2. CATAPRES [Suspect]

REACTIONS (5)
  - MIOSIS [None]
  - HYPORESPONSIVE TO STIMULI [None]
  - HYPOTENSION [None]
  - OVERDOSE [None]
  - SOMNOLENCE [None]
